FAERS Safety Report 8473185-8 (Version None)
Quarter: 2012Q2

REPORT INFORMATION
  Report Type: 
  Country: None (occurrence: None)
  Receive Date: 20120627
  Receipt Date: 20120621
  Transmission Date: 20120825
  Serious: Yes (Other)
  Sender: FDA-Public Use
  Company Number: US-PFIZER INC-2012109290

PATIENT
  Sex: Female
  Weight: 72 kg

DRUGS (7)
  1. HYDROCODONE BITARTRATE + ACETAMINOPHEN [Suspect]
     Indication: PAIN
     Dosage: 7.5/750 MG, 2X/DAY
     Route: 048
     Dates: start: 20120424, end: 20120501
  2. NEURONTIN [Suspect]
     Indication: NEUROPATHY PERIPHERAL
     Dosage: 300 MG, 1X/DAY
     Route: 048
  3. PERCOCET [Suspect]
     Indication: PAIN
     Dosage: 10/325 MG, 3X/DAY
     Route: 048
     Dates: start: 20120421, end: 20120422
  4. GLUCOTROL [Suspect]
     Dosage: UNK
  5. DIFLUCAN [Suspect]
     Dosage: UNK
  6. NEURONTIN [Suspect]
     Dosage: 600 MG, 1X/DAY
     Route: 048
  7. ARTHROTEC [Suspect]
     Dosage: UNK

REACTIONS (6)
  - BLOOD GLUCOSE INCREASED [None]
  - UPPER LIMB FRACTURE [None]
  - PAIN [None]
  - NAUSEA [None]
  - PRURITUS [None]
  - FALL [None]
